FAERS Safety Report 13074548 (Version 1)
Quarter: 2016Q4

REPORT INFORMATION
  Report Type: Report from Study
  Country: JP (occurrence: JP)
  Receive Date: 20161230
  Receipt Date: 20161230
  Transmission Date: 20170207
  Serious: Yes (Hospitalization, Other)
  Sender: FDA-Public Use
  Company Number: JP-BRISTOL-MYERS SQUIBB COMPANY-BMS-2015-033790

PATIENT
  Age: 62 Year
  Sex: Female

DRUGS (20)
  1. NIVOLUMAB [Suspect]
     Active Substance: NIVOLUMAB
     Indication: PRODUCT USED FOR UNKNOWN INDICATION
     Dosage: 2 MG/KG, UNK
     Route: 041
     Dates: start: 20160223, end: 20160223
  2. NIVOLUMAB [Suspect]
     Active Substance: NIVOLUMAB
     Indication: PRODUCT USED FOR UNKNOWN INDICATION
     Dosage: 2 MG/KG, QD
     Route: 041
     Dates: start: 20150616, end: 20150616
  3. NIVOLUMAB [Suspect]
     Active Substance: NIVOLUMAB
     Indication: PRODUCT USED FOR UNKNOWN INDICATION
     Dosage: 2 MG/KG, UNK
     Route: 041
     Dates: start: 20151201, end: 20151201
  4. NIVOLUMAB [Suspect]
     Active Substance: NIVOLUMAB
     Indication: PRODUCT USED FOR UNKNOWN INDICATION
     Dosage: 2 MG/KG, QD
     Route: 041
     Dates: start: 20150818, end: 20150818
  5. NIVOLUMAB [Suspect]
     Active Substance: NIVOLUMAB
     Indication: PRODUCT USED FOR UNKNOWN INDICATION
     Dosage: 2 MG/KG, UNK
     Route: 041
     Dates: start: 20150929, end: 20150929
  6. ZELBORAF [Suspect]
     Active Substance: VEMURAFENIB
     Indication: MALIGNANT MELANOMA
     Dosage: 1920 MG, QD
     Route: 048
     Dates: start: 20150421, end: 20150430
  7. PREDONINE [Concomitant]
     Active Substance: PREDNISOLONE\PREDNISOLONE ACETATE\PREDNISOLONE SODIUM SUCCINATE
     Indication: PRODUCT USED FOR UNKNOWN INDICATION
     Dosage: 30 MG, UNK
     Route: 065
     Dates: start: 20150501, end: 20150502
  8. NIVOLUMAB [Suspect]
     Active Substance: NIVOLUMAB
     Indication: PRODUCT USED FOR UNKNOWN INDICATION
     Dosage: 2 MG/KG, UNK
     Route: 041
     Dates: start: 20151222, end: 20151222
  9. NIVOLUMAB [Suspect]
     Active Substance: NIVOLUMAB
     Indication: PRODUCT USED FOR UNKNOWN INDICATION
     Dosage: 2 MG/KG, UNK
     Route: 041
     Dates: start: 20160202, end: 20160202
  10. NIVOLUMAB [Suspect]
     Active Substance: NIVOLUMAB
     Indication: MALIGNANT MELANOMA
     Dosage: 2 MG/KG, QD
     Route: 041
     Dates: start: 20150317, end: 20150317
  11. NIVOLUMAB [Suspect]
     Active Substance: NIVOLUMAB
     Indication: PRODUCT USED FOR UNKNOWN INDICATION
     Dosage: 2 MG/KG, QD
     Route: 041
     Dates: start: 20150728, end: 20150728
  12. NIVOLUMAB [Suspect]
     Active Substance: NIVOLUMAB
     Indication: PRODUCT USED FOR UNKNOWN INDICATION
     Dosage: 2 MG/KG, UNK
     Route: 041
     Dates: start: 20151110, end: 20151110
  13. NIVOLUMAB [Suspect]
     Active Substance: NIVOLUMAB
     Indication: PRODUCT USED FOR UNKNOWN INDICATION
     Dosage: 2 MG/KG, UNK
     Route: 041
     Dates: start: 20160102, end: 20160102
  14. NIVOLUMAB [Suspect]
     Active Substance: NIVOLUMAB
     Indication: PRODUCT USED FOR UNKNOWN INDICATION
     Dosage: 2 MG/KG, QD
     Route: 041
     Dates: start: 20150407, end: 20150407
  15. NIVOLUMAB [Suspect]
     Active Substance: NIVOLUMAB
     Indication: PRODUCT USED FOR UNKNOWN INDICATION
     Dosage: 2 MG/KG, QD
     Route: 041
     Dates: start: 20150908, end: 20150908
  16. NIVOLUMAB [Suspect]
     Active Substance: NIVOLUMAB
     Indication: PRODUCT USED FOR UNKNOWN INDICATION
     Dosage: 2 MG/KG, UNK
     Route: 041
     Dates: start: 20151020, end: 20151020
  17. PREDONINE [Concomitant]
     Active Substance: PREDNISOLONE\PREDNISOLONE ACETATE\PREDNISOLONE SODIUM SUCCINATE
     Indication: PRODUCT USED FOR UNKNOWN INDICATION
     Dosage: 20 MG, UNK
     Route: 065
     Dates: start: 20150503, end: 20150503
  18. NIVOLUMAB [Suspect]
     Active Substance: NIVOLUMAB
     Indication: PRODUCT USED FOR UNKNOWN INDICATION
     Dosage: 2 MG/KG, QD
     Route: 041
     Dates: start: 20150707, end: 20150707
  19. NIVOLUMAB [Suspect]
     Active Substance: NIVOLUMAB
     Indication: PRODUCT USED FOR UNKNOWN INDICATION
     Dosage: 2 MG/KG, UNK
     Route: 041
     Dates: start: 20160315, end: 20160315
  20. PREDONINE [Concomitant]
     Active Substance: PREDNISOLONE\PREDNISOLONE ACETATE\PREDNISOLONE SODIUM SUCCINATE
     Indication: PRODUCT USED FOR UNKNOWN INDICATION
     Dosage: 10 MG, UNK
     Route: 065
     Dates: start: 20150505, end: 20150513

REACTIONS (10)
  - Arthralgia [Recovered/Resolved]
  - Hair colour changes [Not Recovered/Not Resolved]
  - Alanine aminotransferase increased [Recovered/Resolved]
  - Gamma-glutamyltransferase increased [Recovered/Resolved]
  - Rash generalised [Recovered/Resolved]
  - Vogt-Koyanagi-Harada syndrome [Recovering/Resolving]
  - Therapeutic response decreased [Unknown]
  - Pyrexia [Recovered/Resolved]
  - Aspartate aminotransferase increased [Recovered/Resolved]
  - Tri-iodothyronine free decreased [Recovered/Resolved]

NARRATIVE: CASE EVENT DATE: 20150423
